FAERS Safety Report 25432099 (Version 1)
Quarter: 2025Q2

REPORT INFORMATION
  Report Type: Spontaneous
  Country: GB (occurrence: GB)
  Receive Date: 20250613
  Receipt Date: 20250613
  Transmission Date: 20250717
  Serious: Yes (Other)
  Sender: RANBAXY
  Company Number: GB-MHRA-EMIS-3115-79bd3e3f-372b-4ad2-9980-724d0a3e0cd3

PATIENT
  Age: 71 Year
  Sex: Male
  Weight: 103 kg

DRUGS (5)
  1. ROSUVASTATIN [Suspect]
     Active Substance: ROSUVASTATIN
     Indication: Product used for unknown indication
     Route: 065
     Dates: start: 20250305, end: 20250321
  2. ATORVASTATIN [Suspect]
     Active Substance: ATORVASTATIN
     Indication: Product used for unknown indication
     Route: 065
  3. CLOBETASONE [Concomitant]
     Active Substance: CLOBETASONE
     Indication: Product used for unknown indication
     Route: 065
     Dates: start: 20250207
  4. COLCHICINE [Concomitant]
     Active Substance: COLCHICINE
     Indication: Product used for unknown indication
     Route: 065
     Dates: start: 20250303
  5. ROSUVASTATIN [Concomitant]
     Active Substance: ROSUVASTATIN
     Indication: Product used for unknown indication
     Route: 065
     Dates: start: 20250305, end: 20250321

REACTIONS (1)
  - Nightmare [Recovering/Resolving]
